FAERS Safety Report 5997354-1 (Version None)
Quarter: 2008Q4

REPORT INFORMATION
  Report Type: 
  Country: None (occurrence: None)
  Receive Date: 20081210
  Receipt Date: 20081204
  Transmission Date: 20090506
  Serious: No
  Sender: FDA-Public Use
  Company Number: CHNY2008DE04221

PATIENT
  Age: 29 Year
  Sex: Male
  Weight: 80 kg

DRUGS (6)
  1. NICOTINELL KAUGUMMI         (NICOTINE) CHEWABLE GUM [Suspect]
     Indication: SMOKING CESSATION THERAPY
     Dosage: 1-2 GUMS OF 4 MG DAILY, CHEWED
     Route: 002
     Dates: start: 20081111
  2. ZYPREXA [Concomitant]
  3. ............................. [Concomitant]
  4. ............................. [Concomitant]
  5. .............................. [Concomitant]
  6. ALCOHOL (ETHANOL) [Concomitant]

REACTIONS (7)
  - AGITATION [None]
  - ANXIETY [None]
  - DYSPNOEA [None]
  - HAEMOPTYSIS [None]
  - IRRITABILITY [None]
  - NAUSEA [None]
  - TREATMENT NONCOMPLIANCE [None]
